FAERS Safety Report 18381184 (Version 1)
Quarter: 2020Q4

REPORT INFORMATION
  Report Type: Spontaneous
  Country: US (occurrence: US)
  Receive Date: 20201013
  Receipt Date: 20201013
  Transmission Date: 20210114
  Serious: Yes (Other)
  Sender: FDA-Public Use
  Company Number: None

PATIENT
  Age: 47 Year
  Sex: Female
  Weight: 60.75 kg

DRUGS (1)
  1. CHLORAPREP ONE-STEP [Suspect]
     Active Substance: CHLORHEXIDINE GLUCONATE\ISOPROPYL ALCOHOL
     Indication: DERMATITIS CONTACT
     Route: 061
     Dates: start: 20201009

REACTIONS (3)
  - Application site dermatitis [None]
  - Application site vesicles [None]
  - Application site discolouration [None]

NARRATIVE: CASE EVENT DATE: 20201009
